FAERS Safety Report 6431711-4 (Version None)
Quarter: 2009Q4

REPORT INFORMATION
  Report Type: 
  Country: None (occurrence: None)
  Receive Date: 20091103
  Receipt Date: 20091019
  Transmission Date: 20100525
  Serious: Yes (Hospitalization)
  Sender: FDA-Public Use
  Company Number: 02100-JPN-07-0200

PATIENT
  Age: 51 Year
  Sex: Male
  Weight: 78 kg

DRUGS (5)
  1. PLETAL [Suspect]
     Indication: CEREBRAL INFARCTION
     Dosage: 81 MG, QD, ORAL
     Route: 048
     Dates: start: 20060930, end: 20070304
  2. PLETAL [Suspect]
     Indication: CEREBRAL INFARCTION
     Dosage: 81 MG, QD, ORAL
     Route: 048
     Dates: start: 20070313, end: 20070411
  3. MAGNESIUM OXIDE (MAGNESIUM OXIDE) POWDER (EXCEPT [DPO]) [Concomitant]
  4. SELBEX (TEPRENONE) CAPSULE [Concomitant]
  5. SELTOUCH (FELBINAC) TAPE (INCLUDING POULTICE) [Concomitant]

REACTIONS (1)
  - GASTRIC ULCER HAEMORRHAGE [None]
